FAERS Safety Report 5591998-7 (Version None)
Quarter: 2008Q1

REPORT INFORMATION
  Report Type: 
  Country: None (occurrence: None)
  Receive Date: 20080115
  Receipt Date: 20080110
  Transmission Date: 20080703
  Serious: Yes (Death)
  Sender: FDA-Public Use
  Company Number: US-ASTRAZENECA-2008AC00158

PATIENT
  Age: 24 Year
  Sex: Female

DRUGS (4)
  1. QUETIAPINE [Suspect]
     Route: 048
  2. BUPROPION HCL [Suspect]
     Route: 048
  3. DULOXETINE [Suspect]
     Route: 048
  4. LAMOTRIGINE [Suspect]
     Route: 048

REACTIONS (1)
  - COMPLETED SUICIDE [None]
